FAERS Safety Report 4579336-X (Version None)
Quarter: 2005Q1

REPORT INFORMATION
  Report Type: 
  Country: None (occurrence: None)
  Receive Date: 20050209
  Receipt Date: 20050128
  Transmission Date: 20050727
  Serious: Yes (Death)
  Sender: FDA-Public Use
  Company Number: 2005-DE-00353GD

PATIENT
  Age: 34 Year
  Sex: Female

DRUGS (4)
  1. ALPRAZOLAM [Suspect]
  2. CO(CARBON MONOXIDE) [Suspect]
  3. TRAZODONE (TRAZODONE HYDROCHLORIDE) (TRAZODONE-HCL) [Concomitant]
  4. RISPERDAL [Concomitant]

REACTIONS (1)
  - COMPLETED SUICIDE [None]
